FAERS Safety Report 13499819 (Version 1)
Quarter: 2017Q2

REPORT INFORMATION
  Report Type: Not Available
  Country: NL (occurrence: NL)
  Receive Date: 20170501
  Receipt Date: 20170501
  Transmission Date: 20170830
  Serious: Yes (Other)
  Sender: FDA-Public Use
  Company Number: NL-IDTAUSTRALIA-2017-NL-000005

PATIENT
  Sex: Female

DRUGS (1)
  1. NORTRIPTYLINE HCL (NON-SPECIFIC) [Suspect]
     Active Substance: NORTRIPTYLINE HYDROCHLORIDE
     Route: 065

REACTIONS (2)
  - Toxicity to various agents [Unknown]
  - Electrocardiogram abnormal [Recovered/Resolved]
